FAERS Safety Report 6640236-2 (Version None)
Quarter: 2010Q1

REPORT INFORMATION
  Report Type: 
  Country: None (occurrence: None)
  Receive Date: 20100318
  Receipt Date: 20100310
  Transmission Date: 20100710
  Serious: Yes (Other)
  Sender: FDA-Public Use
  Company Number: JP-ROCHE-690075

PATIENT
  Sex: Male
  Weight: 20 kg

DRUGS (5)
  1. TAMIFLU [Suspect]
     Indication: INFLUENZA
     Dosage: DRUG REPORTED AS TAMIFLU DRY SYRUP 3%
     Route: 048
     Dates: start: 20100205, end: 20100205
  2. ASVERIN [Concomitant]
     Route: 048
     Dates: start: 20100205
  3. MUCODYNE [Concomitant]
     Dosage: DOSE FORM: MINUTE GRAIN
     Route: 048
     Dates: start: 20100205
  4. SINGULAIR [Concomitant]
     Route: 048
     Dates: start: 20100205
  5. ANHIBA [Concomitant]
     Dosage: TAKEN AS NEEDED
     Route: 001
     Dates: start: 20100205

REACTIONS (1)
  - ABNORMAL BEHAVIOUR [None]
